FAERS Safety Report 12524841 (Version 5)
Quarter: 2016Q4

REPORT INFORMATION
  Report Type: Report from Study
  Country: CO (occurrence: CO)
  Receive Date: 20160704
  Receipt Date: 20161024
  Transmission Date: 20170207
  Serious: Yes (Death, Hospitalization, Other)
  Sender: FDA-Public Use
  Company Number: PHHY2016CO081241

PATIENT
  Age: 50 Year
  Sex: Male
  Weight: 57 kg

DRUGS (4)
  1. TASIGNA [Suspect]
     Active Substance: NILOTINIB
     Indication: CHRONIC MYELOID LEUKAEMIA
     Dosage: 2 DF, Q12H
     Route: 048
     Dates: start: 20090701
  2. TASIGNA [Suspect]
     Active Substance: NILOTINIB
     Dosage: 200 MG, BID (MORNING AND NIGHT)
     Route: 048
     Dates: start: 20121001
  3. 4LIFE TRANSFER FACTOR [Concomitant]
     Indication: PRODUCT USED FOR UNKNOWN INDICATION
     Dosage: UNK OT, TID
     Route: 065
  4. TASIGNA [Suspect]
     Active Substance: NILOTINIB
     Dosage: 2 DF OF 200 MG, BID (MORNING AND NIGHT)
     Route: 048
     Dates: end: 20160629

REACTIONS (17)
  - Malignant neoplasm progression [Fatal]
  - Splenic rupture [Unknown]
  - Myocardial infarction [Unknown]
  - Agitation [Unknown]
  - White blood cell count increased [Fatal]
  - Shock [Unknown]
  - General physical health deterioration [Unknown]
  - Haemoglobin decreased [Unknown]
  - Headache [Unknown]
  - Chronic myeloid leukaemia [Fatal]
  - Effusion [Unknown]
  - Loss of consciousness [Unknown]
  - Diarrhoea [Unknown]
  - Vomiting [Unknown]
  - Asthenia [Unknown]
  - Cerebral thrombosis [Unknown]
  - Dizziness [Unknown]

NARRATIVE: CASE EVENT DATE: 20160622
